FAERS Safety Report 11291199 (Version 1)
Quarter: 2015Q3

REPORT INFORMATION
  Report Type: Report from Study
  Country: US (occurrence: None)
  Receive Date: 20150720
  Receipt Date: 20150720
  Transmission Date: 20151125
  Serious: Yes (Hospitalization)
  Sender: FDA-Public Use
  Company Number: KAD201507-002237

PATIENT
  Sex: Male
  Weight: 74.84 kg

DRUGS (2)
  1. VIEKIRA PAK [Suspect]
     Active Substance: DASABUVIR\OMBITASVIR\PARITAPREVIR\RITONAVIR
     Route: 048
     Dates: end: 20150428
  2. RIBAVIRIN (RIBAVIRIN) [Suspect]
     Active Substance: RIBAVIRIN
     Route: 048
     Dates: end: 20150428

REACTIONS (2)
  - Food poisoning [None]
  - Cholecystectomy [None]

NARRATIVE: CASE EVENT DATE: 2015
